FAERS Safety Report 7262586-1 (Version None)
Quarter: 2011Q1

REPORT INFORMATION
  Report Type: 
  Country: None (occurrence: None)
  Receive Date: 20110130
  Receipt Date: 20100910
  Transmission Date: 20110831
  Serious: No
  Sender: FDA-Public Use
  Company Number: US-ABBOTT-10P-163-0670483-00

PATIENT
  Age: 72 Year
  Sex: Male

DRUGS (13)
  1. LASIX [Concomitant]
     Indication: BLOOD PRESSURE
  2. BENICAR [Concomitant]
     Indication: BLOOD PRESSURE
  3. TEKTURNA [Concomitant]
     Indication: BLOOD PRESSURE
  4. BYSTOLIC [Concomitant]
     Indication: BLOOD PRESSURE
  5. INSULIN [Concomitant]
     Indication: DIABETES MELLITUS
  6. METFORMIN [Concomitant]
     Indication: DIABETES MELLITUS
  7. ALLOPURINOL [Concomitant]
     Indication: GOUT
  8. WARFARIN [Concomitant]
     Indication: PRODUCT USED FOR UNKNOWN INDICATION
     Dosage: DAILY EXCEPT FOR WED AND SUN, WHEN HE TAKES 7.5MG
  9. FLOMAX [Concomitant]
     Indication: PROSTATIC DISORDER
  10. HUMIRA [Suspect]
     Indication: RHEUMATOID ARTHRITIS
     Dates: start: 20100701
  11. PREDNISONE [Concomitant]
     Indication: RHEUMATOID ARTHRITIS
     Dosage: 5MG ONE DAY, THEN 7.5MG THE NEXT DAY
  12. POTASSIUM [Concomitant]
     Indication: ELECTROLYTE SUBSTITUTION THERAPY
     Dosage: DAILY
  13. METHOTREXATE [Concomitant]
     Indication: RHEUMATOID ARTHRITIS
     Dosage: 4 TABS WEEKLY

REACTIONS (7)
  - DRUG INEFFECTIVE [None]
  - PAIN IN EXTREMITY [None]
  - THROAT IRRITATION [None]
  - ARTHRALGIA [None]
  - PAIN [None]
  - MUSCULOSKELETAL PAIN [None]
  - PAIN IN JAW [None]
